FAERS Safety Report 4712329-8 (Version None)
Quarter: 2005Q3

REPORT INFORMATION
  Report Type: 
  Country: None (occurrence: None)
  Receive Date: 20050711
  Receipt Date: 20050627
  Transmission Date: 20060218
  Serious: Yes (Death)
  Sender: FDA-Public Use
  Company Number: 2005094668

PATIENT
  Sex: Female

DRUGS (1)
  1. NEURONTIN [Suspect]
     Indication: BIPOLAR DISORDER

REACTIONS (3)
  - COMPLETED SUICIDE [None]
  - DRUG INEFFECTIVE [None]
  - INJURY ASPHYXIATION [None]
